FAERS Safety Report 9416732 (Version 2)
Quarter: 2013Q3

REPORT INFORMATION
  Report Type: Spontaneous
  Country: BR (occurrence: BR)
  Receive Date: 20130724
  Receipt Date: 20130822
  Transmission Date: 20140515
  Serious: Yes (Death, Hospitalization, Other)
  Sender: FDA-Public Use
  Company Number: BR-PFIZER INC-2013212793

PATIENT
  Age: 60 Year
  Sex: Male

DRUGS (1)
  1. SUTENT [Suspect]
     Indication: RENAL CANCER METASTATIC
     Dosage: 50 MG, DAILY, CYCLE 4 PER 2, FOR 4 WEEKS AND 2-WEEK OFF
     Route: 048

REACTIONS (9)
  - Disease progression [Fatal]
  - Renal cancer metastatic [Fatal]
  - Bone lesion [Unknown]
  - Renal impairment [Unknown]
  - Gait disturbance [Unknown]
  - Pain [Unknown]
  - Bedridden [Unknown]
  - Eschar [Unknown]
  - Oedema [Unknown]
